FAERS Safety Report 9474072 (Version 2)
Quarter: 2013Q3

REPORT INFORMATION
  Report Type: Spontaneous
  Country: US (occurrence: US)
  Receive Date: 20130823
  Receipt Date: 20130827
  Transmission Date: 20140515
  Serious: No
  Sender: FDA-Public Use
  Company Number: US-009507513-1308USA007102

PATIENT
  Age: 58 Year
  Sex: Female

DRUGS (1)
  1. NASONEX [Suspect]
     Indication: HYPERSENSITIVITY
     Dosage: DOSE: 2 SPRAYS IN EACH NOSTRIL TWICE A DAY, BID
     Route: 045

REACTIONS (6)
  - Respiratory tract congestion [Not Recovered/Not Resolved]
  - Eye pruritus [Not Recovered/Not Resolved]
  - Asthenopia [Not Recovered/Not Resolved]
  - Nasal discomfort [Not Recovered/Not Resolved]
  - Product quality issue [Unknown]
  - Drug dose omission [Unknown]
